FAERS Safety Report 4744018-8 (Version None)
Quarter: 2005Q3

REPORT INFORMATION
  Report Type: 
  Country: None (occurrence: None)
  Receive Date: 20050812
  Receipt Date: 20050714
  Transmission Date: 20060218
  Serious: Yes (Hospitalization)
  Sender: FDA-Public Use
  Company Number: PHHO2005CO11219

PATIENT
  Age: 35 Year
  Sex: Male

DRUGS (4)
  1. SANDOSTATIN LAR [Suspect]
     Indication: NEUROENDOCRINE CARCINOMA
     Dosage: 0.1 MG, TID
     Route: 058
     Dates: start: 20050627
  2. SANDOSTATIN LAR [Suspect]
     Indication: NEUROENDOCRINE CARCINOMA
  3. TRAMADOL HCL [Concomitant]
  4. RANITIDINE [Concomitant]

REACTIONS (2)
  - CHEST PAIN [None]
  - PULMONARY EMBOLISM [None]
